FAERS Safety Report 10248903 (Version 1)
Quarter: 2014Q2

REPORT INFORMATION
  Report Type: Spontaneous
  Country: GB (occurrence: GB)
  Receive Date: 20140620
  Receipt Date: 20140620
  Transmission Date: 20141212
  Serious: Yes (Hospitalization)
  Sender: FDA-Public Use
  Company Number: GB-JNJFOC-20140604252

PATIENT
  Age: 1 Hour
  Sex: 0
  Weight: 4 kg

DRUGS (2)
  1. CO- CODAMOL [Suspect]
     Indication: PRODUCT USED FOR UNKNOWN INDICATION
     Route: 064
  2. PEDIACEL [Suspect]
     Indication: IMMUNISATION
     Route: 064
     Dates: start: 20131024, end: 20131024

REACTIONS (3)
  - Respiratory distress [Recovered/Resolved]
  - Transient tachypnoea of the newborn [Recovered/Resolved]
  - Exposure during pregnancy [Unknown]
